FAERS Safety Report 4774218-2 (Version None)
Quarter: 2005Q3

REPORT INFORMATION
  Report Type: 
  Country: None (occurrence: None)
  Receive Date: 20050914
  Receipt Date: 20050726
  Transmission Date: 20060218
  Serious: Yes (Other)
  Sender: FDA-Public Use
  Company Number: 412187

PATIENT
  Sex: Female

DRUGS (3)
  1. BONIVA [Suspect]
     Indication: OSTEOPOROSIS
     Dosage: ORAL
  2. CALCIUM (CALCIUM) [Suspect]
     Indication: MEDICAL DIET
     Dosage: ORAL
     Route: 048
  3. CENTRUM SILVER (MINERALS NOS/MULTIVITAMIN NOS) [Concomitant]

REACTIONS (2)
  - DRUG INTERACTION [None]
  - GASTROOESOPHAGEAL REFLUX DISEASE [None]
